FAERS Safety Report 4478788-3 (Version None)
Quarter: 2004Q4

REPORT INFORMATION
  Report Type: 
  Country: None (occurrence: None)
  Receive Date: 20041014
  Receipt Date: 20040929
  Transmission Date: 20050328
  Serious: Yes (Hospitalization)
  Sender: FDA-Public Use
  Company Number: US013931

PATIENT
  Age: 8 Year
  Sex: Male

DRUGS (12)
  1. GABITRIL [Suspect]
     Indication: AGGRESSION
     Dosage: 9 MG QD ORAL
     Route: 048
     Dates: start: 20031103, end: 20031115
  2. GABITRIL [Suspect]
     Indication: AGGRESSION
     Dosage: 10 MG BID ORAL
     Route: 048
     Dates: start: 20031116, end: 20031122
  3. GABITRIL [Suspect]
     Indication: AGGRESSION
     Dosage: 6 MG BID ORAL
     Route: 048
     Dates: start: 20031123, end: 20040307
  4. GABITRIL [Suspect]
     Indication: AGGRESSION
     Dosage: 8 MG BID ORAL
     Route: 048
     Dates: start: 20040308, end: 20040815
  5. GABITRIL [Suspect]
     Indication: AGGRESSION
     Dosage: 2 MG QD ORAL
     Route: 048
     Dates: start: 20040831, end: 20040906
  6. GABITRIL [Suspect]
     Indication: AGGRESSION
     Dosage: 2 MG BID ORAL
     Route: 048
     Dates: start: 20040907, end: 20040920
  7. GABITRIL [Suspect]
     Indication: AGGRESSION
     Dosage: 8 MG BID ORAL
     Route: 048
     Dates: start: 20040921
  8. DEPAKOTE [Concomitant]
  9. FOCALIN [Concomitant]
  10. CLONIDINE HCL [Concomitant]
  11. TRILEPTAL [Concomitant]
  12. STRATTERA [Concomitant]

REACTIONS (2)
  - ABNORMAL BEHAVIOUR [None]
  - CONVULSION [None]
